FAERS Safety Report 4722911-X (Version None)
Quarter: 2005Q3

REPORT INFORMATION
  Report Type: 
  Country: None (occurrence: None)
  Receive Date: 20050722
  Receipt Date: 20050714
  Transmission Date: 20060218
  Serious: Yes (Death)
  Sender: FDA-Public Use
  Company Number: US-ABBOTT-05P-163-0306207-00

PATIENT
  Sex: Male

DRUGS (1)
  1. MAVIK [Suspect]
     Indication: HYPERTENSION
     Dates: start: 20040713, end: 20050512

REACTIONS (1)
  - INTESTINAL ISCHAEMIA [None]
